FAERS Safety Report 11549874 (Version 3)
Quarter: 2016Q3

REPORT INFORMATION
  Report Type: Spontaneous
  Country: US (occurrence: US)
  Receive Date: 20150924
  Receipt Date: 20160929
  Transmission Date: 20161109
  Serious: No
  Sender: FDA-Public Use
  Company Number: US-INCYTE CORPORATION-2015IN003451

PATIENT
  Sex: Female

DRUGS (13)
  1. TRAZODONE [Concomitant]
     Active Substance: TRAZODONE HYDROCHLORIDE
  2. JAKAFI [Suspect]
     Active Substance: RUXOLITINIB
     Dosage: 5 MG, BID
     Route: 048
     Dates: start: 20150708
  3. FIORICET [Concomitant]
     Active Substance: ACETAMINOPHEN\BUTALBITAL\CAFFEINE
  4. LAMICTAL [Concomitant]
     Active Substance: LAMOTRIGINE
  5. JAKAFI [Suspect]
     Active Substance: RUXOLITINIB
     Indication: POLYCYTHAEMIA VERA
     Dosage: 10 MG, BID
     Route: 048
     Dates: start: 20150707, end: 20150717
  6. CLONIDINE. [Concomitant]
     Active Substance: CLONIDINE
  7. CYMBALTA [Concomitant]
     Active Substance: DULOXETINE HYDROCHLORIDE
  8. WELLBUTRIN [Concomitant]
     Active Substance: BUPROPION HYDROCHLORIDE
  9. KLONOPIN [Concomitant]
     Active Substance: CLONAZEPAM
  10. JAKAFI [Suspect]
     Active Substance: RUXOLITINIB
     Indication: MYELOFIBROSIS
     Dosage: 10 MG, QD
     Route: 048
     Dates: start: 20150724, end: 20150806
  11. SYNTHROID [Concomitant]
     Active Substance: LEVOTHYROXINE SODIUM
  12. BABY ASPIRIN [Concomitant]
     Active Substance: ASPIRIN
     Dosage: PRN
  13. JAKAFI [Suspect]
     Active Substance: RUXOLITINIB
     Dosage: 10 MG, BID
     Route: 048
     Dates: start: 20150807

REACTIONS (11)
  - Pruritus [Recovering/Resolving]
  - Headache [Recovered/Resolved with Sequelae]
  - Constipation [Unknown]
  - Weight decreased [Unknown]
  - Pain [Recovering/Resolving]
  - Nausea [Unknown]
  - Hyperhidrosis [Not Recovered/Not Resolved]
  - Decreased appetite [Unknown]
  - Acne [Recovering/Resolving]
  - Abdominal pain [Unknown]
  - Fatigue [Recovering/Resolving]

NARRATIVE: CASE EVENT DATE: 2015
